FAERS Safety Report 17574043 (Version 1)
Quarter: 2020Q1

REPORT INFORMATION
  Report Type: Spontaneous
  Country: GB (occurrence: GB)
  Receive Date: 20200323
  Receipt Date: 20200323
  Transmission Date: 20200409
  Serious: Yes (Other)
  Sender: FDA-Public Use
  Company Number: GB-SEPTODONT-202005781

PATIENT
  Age: 39 Year

DRUGS (1)
  1. LIGNOCAINE WITH ADRENALINE [Suspect]
     Active Substance: EPINEPHRINE BITARTRATE\LIDOCAINE HYDROCHLORIDE
     Indication: DENTAL LOCAL ANAESTHESIA
     Dosage: 2.2 ML LIGNOCAINE, 1:80.000 ADRENALINE
     Dates: start: 20200117, end: 20200117

REACTIONS (3)
  - Dysphagia [Recovered/Resolved]
  - Cough [Recovered/Resolved]
  - Aphonia [Recovered/Resolved]

NARRATIVE: CASE EVENT DATE: 20200117
